FAERS Safety Report 7240846-8 (Version None)
Quarter: 2011Q1

REPORT INFORMATION
  Report Type: 
  Country: None (occurrence: None)
  Receive Date: 20110120
  Receipt Date: 20110120
  Transmission Date: 20110831
  Serious: Yes (Hospitalization, Disabling)
  Sender: FDA-Public Use
  Company Number: None

PATIENT
  Age: 19 Year
  Sex: Male
  Weight: 63.5036 kg

DRUGS (3)
  1. ZOFRAN [Suspect]
     Indication: DIARRHOEA
     Dosage: 4 MG TAB 1 TAB BY MOUTH EVERY 8 HRS (1 WEEK PRIOR TO HOSPITALIZATION)
     Route: 048
  2. ZOFRAN [Suspect]
     Indication: NAUSEA
     Dosage: 4 MG TAB 1 TAB BY MOUTH EVERY 8 HRS (1 WEEK PRIOR TO HOSPITALIZATION)
     Route: 048
  3. ZOFRAN [Suspect]
     Indication: INFLUENZA LIKE ILLNESS
     Dosage: 4 MG TAB 1 TAB BY MOUTH EVERY 8 HRS (1 WEEK PRIOR TO HOSPITALIZATION)
     Route: 048

REACTIONS (6)
  - SWELLING FACE [None]
  - DYSARTHRIA [None]
  - SYNCOPE [None]
  - VOMITING [None]
  - CONVULSION [None]
  - LOCAL SWELLING [None]
